FAERS Safety Report 7538521-5 (Version None)
Quarter: 2011Q2

REPORT INFORMATION
  Report Type: 
  Country: None (occurrence: None)
  Receive Date: 20110610
  Receipt Date: 20110530
  Transmission Date: 20111010
  Serious: Yes (Hospitalization)
  Sender: FDA-Public Use
  Company Number: AU-BIOGENIDEC-2011BI017704

PATIENT
  Age: 48 Year
  Sex: Male

DRUGS (14)
  1. ACETAMINOPHEN [Concomitant]
  2. ROSUVASTATIN [Concomitant]
  3. COLOXYL [Concomitant]
     Route: 048
  4. BACLOFEN [Concomitant]
  5. TYSABRI [Suspect]
     Indication: RELAPSING-REMITTING MULTIPLE SCLEROSIS
     Route: 042
     Dates: start: 20100422
  6. PANTOPRAZOLE [Concomitant]
  7. TESTOSTERONE [Concomitant]
     Route: 042
  8. DULOXETINE HYDROCHLORIDE [Concomitant]
  9. OXYCODONE HCL [Concomitant]
  10. CARBAMAZEPINE [Concomitant]
  11. SENNA-MINT WAF [Concomitant]
     Route: 048
  12. METHADONE HCL [Concomitant]
  13. FENOFIBRATE [Concomitant]
  14. PREGABALIN [Concomitant]

REACTIONS (3)
  - BACK PAIN [None]
  - MUSCULAR WEAKNESS [None]
  - HYPOAESTHESIA [None]
